FAERS Safety Report 8939364 (Version 1)
Quarter: 2012Q4

REPORT INFORMATION
  Report Type: Report from Study
  Country: CA (occurrence: CA)
  Receive Date: 20121203
  Receipt Date: 20121203
  Transmission Date: 20130627
  Serious: Yes (Other)
  Sender: FDA-Public Use
  Company Number: CA-JNJFOC-20121111673

PATIENT
  Sex: Female
  Weight: 81.9 kg

DRUGS (2)
  1. REMICADE [Suspect]
     Indication: CROHN^S DISEASE
     Route: 042
  2. TYLENOL [Concomitant]
     Route: 065

REACTIONS (2)
  - Haemorrhage [Recovering/Resolving]
  - Abdominal pain [Not Recovered/Not Resolved]
